FAERS Safety Report 25448789 (Version 2)
Quarter: 2025Q2

REPORT INFORMATION
  Report Type: Spontaneous
  Country: US (occurrence: US)
  Receive Date: 20250618
  Receipt Date: 20250621
  Transmission Date: 20250716
  Serious: Yes (Disabling, Other)
  Sender: DR REDDYS
  Company Number: US-DRL-USA-USA/2025/06/008161

PATIENT
  Sex: Female

DRUGS (1)
  1. CARBIDOPA AND LEVODOPA [Suspect]
     Active Substance: CARBIDOPA\LEVODOPA
     Indication: Parkinson^s disease
     Route: 065
     Dates: start: 201802

REACTIONS (7)
  - Disability [Unknown]
  - Dopamine agonist withdrawal syndrome [Unknown]
  - Paresis [Unknown]
  - Mental disorder [Unknown]
  - Mania [Unknown]
  - Delusion [Unknown]
  - Dyskinesia [Unknown]
